FAERS Safety Report 5128296-1 (Version None)
Quarter: 2006Q4

REPORT INFORMATION
  Report Type: 
  Country: None (occurrence: None)
  Receive Date: 20061017
  Receipt Date: 20061011
  Transmission Date: 20070319
  Serious: Yes (Other)
  Sender: FDA-Public Use
  Company Number: JP-BRISTOL-MYERS SQUIBB COMPANY-13537709

PATIENT
  Age: 37 Year
  Sex: Female

DRUGS (10)
  1. ETOPOSIDE [Suspect]
     Indication: CHORIOCARCINOMA
  2. ETOPOSIDE [Suspect]
     Indication: METASTASES TO LUNG
  3. METHOTREXATE [Suspect]
     Indication: CHORIOCARCINOMA
  4. METHOTREXATE [Suspect]
     Indication: METASTASES TO LUNG
  5. CYCLOPHOSPHAMIDE [Suspect]
     Indication: CHORIOCARCINOMA
  6. CYCLOPHOSPHAMIDE [Suspect]
     Indication: METASTASES TO LUNG
  7. COSMEGEN [Suspect]
     Indication: CHORIOCARCINOMA
  8. COSMEGEN [Suspect]
     Indication: METASTASES TO LUNG
  9. VINCRISTINE [Suspect]
     Indication: CHORIOCARCINOMA
  10. VINCRISTINE [Suspect]
     Indication: METASTASES TO LUNG

REACTIONS (5)
  - ARTHRALGIA [None]
  - BONE MARROW FAILURE [None]
  - DYSPNOEA [None]
  - NEPHROPATHY TOXIC [None]
  - STOMATITIS [None]
